FAERS Safety Report 8105254-6 (Version None)
Quarter: 2012Q1

REPORT INFORMATION
  Report Type: 
  Country: None (occurrence: None)
  Receive Date: 20120201
  Receipt Date: 20120118
  Transmission Date: 20120608
  Serious: Yes (Other)
  Sender: FDA-Public Use
  Company Number: CA-JNJFOC-20120113578

PATIENT
  Sex: Female
  Weight: 88.45 kg

DRUGS (1)
  1. REMICADE [Suspect]
     Indication: RHEUMATOID ARTHRITIS
     Route: 042
     Dates: start: 20070101, end: 20110801

REACTIONS (4)
  - DYSPNOEA [None]
  - VOMITING [None]
  - INFUSION RELATED REACTION [None]
  - DRUG SPECIFIC ANTIBODY PRESENT [None]
